FAERS Safety Report 7392262-6 (Version None)
Quarter: 2011Q2

REPORT INFORMATION
  Report Type: 
  Country: None (occurrence: None)
  Receive Date: 20110404
  Receipt Date: 20110325
  Transmission Date: 20111010
  Serious: Yes (Other)
  Sender: FDA-Public Use
  Company Number: JP-MERCK-1103USA03810

PATIENT
  Age: 63 Year
  Sex: Male

DRUGS (14)
  1. PYRAZINAMIDE [Concomitant]
     Route: 065
     Dates: end: 20080601
  2. ETHIONAMIDE [Concomitant]
     Route: 065
     Dates: start: 20080701, end: 20080801
  3. LENDORMIN [Concomitant]
     Route: 065
  4. URSO 250 [Concomitant]
     Route: 065
  5. SPELEAR [Concomitant]
     Route: 065
  6. CYCLOSERINE [Suspect]
     Route: 048
     Dates: start: 20080701
  7. MAGNESIUM OXIDE [Concomitant]
     Route: 065
  8. ETHAMBUTOL HYDROCHLORIDE [Concomitant]
     Route: 065
     Dates: end: 20080601
  9. STREPTOMYCIN [Concomitant]
     Route: 065
     Dates: start: 20080701, end: 20090801
  10. LEVOFLOXACIN [Concomitant]
     Route: 065
     Dates: start: 20080701, end: 20090801
  11. PEPCID [Suspect]
     Route: 048
  12. HYZAAR [Concomitant]
     Indication: HYPERTENSION
     Route: 048
  13. RIFAMPIN [Concomitant]
     Route: 065
     Dates: end: 20080601
  14. RIFABUTIN [Concomitant]
     Route: 065
     Dates: start: 20090101, end: 20090501

REACTIONS (5)
  - HEPATIC FUNCTION ABNORMAL [None]
  - MULTIPLE-DRUG RESISTANCE [None]
  - DRUG ERUPTION [None]
  - SKIN TEST POSITIVE [None]
  - PULMONARY TUBERCULOSIS [None]
